FAERS Safety Report 9522817 (Version 1)
Quarter: 2013Q3

REPORT INFORMATION
  Report Type: Report from Study
  Country: US (occurrence: US)
  Receive Date: 20130913
  Receipt Date: 20130913
  Transmission Date: 20140515
  Serious: Yes (Hospitalization)
  Sender: FDA-Public Use
  Company Number: US-ABBOTT-13P-163-1142942-00

PATIENT
  Age: 33 Year
  Sex: Female
  Weight: 62.65 kg

DRUGS (17)
  1. HUMIRA [Suspect]
     Indication: CROHN^S DISEASE
     Route: 058
     Dates: start: 20090224, end: 20090928
  2. METHADONE [Concomitant]
     Indication: CROHN^S DISEASE
     Dates: start: 20090910, end: 20091203
  3. METHADONE [Concomitant]
     Indication: ARTHRITIS
  4. PRENATAL VITAMINS [Concomitant]
     Indication: PRODUCT USED FOR UNKNOWN INDICATION
     Route: 048
     Dates: start: 20090224, end: 20091201
  5. ENSURE PLUS [Concomitant]
     Indication: PRODUCT USED FOR UNKNOWN INDICATION
     Dosage: 1 DRINK 2-3 X PER WEEK
     Dates: start: 20090224, end: 20090808
  6. LEXAPRO [Concomitant]
     Indication: DEPRESSION
     Dates: start: 20090224, end: 20091203
  7. NEXIUM [Concomitant]
     Indication: NAUSEA
     Route: 048
     Dates: start: 20090224, end: 20091203
  8. NEXIUM [Concomitant]
     Indication: DYSPEPSIA
  9. LORAZEPAM [Concomitant]
     Indication: ANXIETY
     Dates: start: 20090224, end: 20090913
  10. NORCO [Concomitant]
     Indication: CROHN^S DISEASE
     Route: 048
     Dates: start: 20090224, end: 20090815
  11. NORCO [Concomitant]
     Indication: ARTHRITIS
     Dosage: 10 MG - 325 MG TAB
     Route: 048
     Dates: start: 20090816, end: 20090914
  12. NORCO [Concomitant]
     Route: 048
     Dates: start: 20090915, end: 20091203
  13. BENADRYL [Concomitant]
     Indication: HYPERSENSITIVITY
     Route: 048
     Dates: start: 20090517, end: 20091203
  14. IRON [Concomitant]
     Indication: ANAEMIA
     Route: 048
     Dates: start: 20090622, end: 20091201
  15. ENTOCORT EC [Concomitant]
     Indication: CROHN^S DISEASE
     Route: 048
     Dates: start: 20090621, end: 20091203
  16. INFLUENZA [Concomitant]
     Indication: INFLUENZA
     Route: 050
     Dates: start: 20091017, end: 20091017
  17. INFLUENZA A (H1N1) 2009 MONOVALENT VACCINE [Concomitant]
     Indication: INFLUENZA IMMUNISATION
     Route: 050
     Dates: start: 20091117, end: 20091117

REACTIONS (7)
  - Foetal non-stress test abnormal [Unknown]
  - Viral infection [Recovered/Resolved]
  - Pyrexia [Recovered/Resolved]
  - Ligament sprain [Unknown]
  - Blood calcium decreased [Recovered/Resolved]
  - Crohn^s disease [Recovered/Resolved]
  - Dyspepsia [Recovered/Resolved]
